FAERS Safety Report 18495170 (Version 2)
Quarter: 2020Q4

REPORT INFORMATION
  Report Type: Report from Study
  Country: None (occurrence: US)
  Receive Date: 20201112
  Receipt Date: 20201119
  Transmission Date: 20210114
  Serious: Yes (Other)
  Sender: FDA-Public Use
  Company Number: US-ABBVIE-20K-163-3642853-00

PATIENT
  Sex: Male

DRUGS (3)
  1. XGEVA [Suspect]
     Active Substance: DENOSUMAB
     Indication: PRODUCT USED FOR UNKNOWN INDICATION
     Route: 065
  2. LUPRON [Suspect]
     Active Substance: LEUPROLIDE ACETATE
     Indication: PRODUCT USED FOR UNKNOWN INDICATION
     Route: 065
  3. XTANDI [Suspect]
     Active Substance: ENZALUTAMIDE
     Indication: PROSTATE CANCER
     Route: 048
     Dates: start: 20190820

REACTIONS (30)
  - Hunger [Unknown]
  - Defaecation urgency [Recovering/Resolving]
  - Exostosis [Recovering/Resolving]
  - Onycholysis [Recovering/Resolving]
  - Tremor [Recovering/Resolving]
  - Pulmonary congestion [Recovering/Resolving]
  - Psoriatic arthropathy [Recovering/Resolving]
  - Skin injury [Recovering/Resolving]
  - Alopecia [Recovering/Resolving]
  - Arthritis [Recovering/Resolving]
  - Fat redistribution [Recovering/Resolving]
  - Taste disorder [Recovering/Resolving]
  - Fatigue [Recovering/Resolving]
  - Rhinorrhoea [Recovering/Resolving]
  - Skin disorder [Recovering/Resolving]
  - Memory impairment [Recovering/Resolving]
  - Urinary tract infection [Recovering/Resolving]
  - Feeling of despair [Recovering/Resolving]
  - Nocturia [Recovering/Resolving]
  - Pain in extremity [Recovering/Resolving]
  - Depression [Recovering/Resolving]
  - Hot flush [Recovering/Resolving]
  - Testicular disorder [Recovering/Resolving]
  - Musculoskeletal chest pain [Recovering/Resolving]
  - Weight increased [Recovering/Resolving]
  - Chest discomfort [Recovering/Resolving]
  - Feminisation acquired [Recovering/Resolving]
  - Psoriasis [Recovering/Resolving]
  - Malaise [Recovering/Resolving]
  - Breast enlargement [Recovering/Resolving]
